FAERS Safety Report 16877377 (Version 2)
Quarter: 2019Q4

REPORT INFORMATION
  Report Type: Spontaneous
  Country: US (occurrence: US)
  Receive Date: 20191002
  Receipt Date: 20191009
  Transmission Date: 20200122
  Serious: No
  Sender: FDA-Public Use
  Company Number: US-PFIZER INC-2019417065

PATIENT
  Age: 67 Year
  Sex: Female
  Weight: 89.36 kg

DRUGS (4)
  1. LEVOTHYROXINE SODIUM. [Suspect]
     Active Substance: LEVOTHYROXINE SODIUM
     Dosage: UNK
  2. HYDROCHLOROTHIAZIDE. [Concomitant]
     Active Substance: HYDROCHLOROTHIAZIDE
     Dosage: UNK
  3. ASPIRIN. [Concomitant]
     Active Substance: ASPIRIN
     Dosage: UNK
  4. COLESTIPOL HCL [Suspect]
     Active Substance: COLESTIPOL HYDROCHLORIDE
     Indication: COLITIS
     Dosage: 1 G, THREE TIMES A DAY
     Route: 048
     Dates: start: 20190916

REACTIONS (2)
  - Epistaxis [Unknown]
  - Alopecia [Unknown]

NARRATIVE: CASE EVENT DATE: 2019
